FAERS Safety Report 16145808 (Version 1)
Quarter: 2019Q2

REPORT INFORMATION
  Report Type: Spontaneous
  Country: US (occurrence: US)
  Receive Date: 20190228
  Receipt Date: 20190228
  Transmission Date: 20190711
  Serious: No
  Sender: FDA-Public Use
  Company Number: None

PATIENT
  Age: 64 Year
  Sex: Female

DRUGS (1)
  1. MAVYRET [Suspect]
     Active Substance: GLECAPREVIR\PIBRENTASVIR
     Indication: HEPATITIS C
     Dates: start: 20190208

REACTIONS (5)
  - Hypersensitivity [None]
  - Fatigue [None]
  - Headache [None]
  - Nausea [None]
  - Pruritus [None]

NARRATIVE: CASE EVENT DATE: 20190212
